FAERS Safety Report 9251022 (Version 3)
Quarter: 2014Q1

REPORT INFORMATION
  Report Type: Spontaneous
  Country: US (occurrence: US)
  Receive Date: 20130424
  Receipt Date: 20140211
  Transmission Date: 20141002
  Serious: Yes (Hospitalization, Disabling, Other)
  Sender: FDA-Public Use
  Company Number: US-ASTRAZENECA-2013SE27230

PATIENT
  Age: 47 Year
  Sex: Male
  Weight: 93 kg

DRUGS (18)
  1. NEXIUM [Suspect]
     Indication: GASTROOESOPHAGEAL REFLUX DISEASE
     Route: 048
     Dates: start: 2003, end: 2012
  2. NEXIUM [Suspect]
     Indication: GASTROOESOPHAGEAL REFLUX DISEASE
     Route: 048
     Dates: start: 20030107
  3. PREVACID [Concomitant]
     Indication: GASTROOESOPHAGEAL REFLUX DISEASE
     Dates: start: 1995, end: 1999
  4. GABAPENTIN [Concomitant]
     Indication: NEUROPATHY PERIPHERAL
  5. OXYCOTINE/OXYCODONE [Concomitant]
     Indication: PAIN
  6. CYCLOBENZAPRINE [Concomitant]
     Indication: MUSCLE RELAXANT THERAPY
  7. ZOLPIDEM [Concomitant]
     Indication: INSOMNIA
  8. TERAZOSIN [Concomitant]
     Indication: HYPERTENSION
  9. LIPITOR [Concomitant]
     Dates: start: 20040107
  10. TRAMADOL HCL [Concomitant]
     Dates: start: 20030701
  11. PREDNISONE [Concomitant]
     Dates: start: 20040429
  12. ULTRACET [Concomitant]
     Dates: start: 20040830
  13. CELEBREX [Concomitant]
     Dates: start: 20051212
  14. MORPHINE SULPHATE [Concomitant]
     Dates: start: 20070724
  15. MELOXICAM [Concomitant]
     Dates: start: 20080305
  16. ZEGERID [Concomitant]
     Dates: start: 20090306
  17. DICYCLOMINE [Concomitant]
     Dates: start: 20100227
  18. METHYLPREDNISOLONE [Concomitant]
     Dates: start: 20101130

REACTIONS (11)
  - Gastrointestinal infection [Unknown]
  - Intervertebral disc injury [Unknown]
  - Neck injury [Unknown]
  - Joint dislocation [Unknown]
  - Osteoporosis [Unknown]
  - Radius fracture [Unknown]
  - Bone disorder [Unknown]
  - Multiple fractures [Unknown]
  - Gastric infection [Unknown]
  - Carpal tunnel syndrome [Unknown]
  - Intervertebral disc degeneration [Unknown]
